FAERS Safety Report 15455835 (Version 1)
Quarter: 2018Q4

REPORT INFORMATION
  Report Type: Report from Study
  Country: IT (occurrence: IT)
  Receive Date: 20181002
  Receipt Date: 20181002
  Transmission Date: 20190204
  Serious: Yes (Other)
  Sender: FDA-Public Use
  Company Number: IT-ELI_LILLY_AND_COMPANY-IT201809010793

PATIENT
  Age: 70 Year
  Sex: Male
  Weight: 70 kg

DRUGS (6)
  1. CETUXIMAB. [Suspect]
     Active Substance: CETUXIMAB
     Indication: RECTAL CANCER
     Dosage: 920 MG, CYCLICAL (5 MG/ML)
     Route: 042
     Dates: start: 20170206
  2. CETUXIMAB. [Suspect]
     Active Substance: CETUXIMAB
     Dosage: 460 MG, CYCLICAL (5 MG/ML)
     Route: 042
     Dates: start: 20170814
  3. CETUXIMAB. [Suspect]
     Active Substance: CETUXIMAB
     Dosage: 920 MG, CYCLICAL (5 MG/ML)
     Route: 042
     Dates: start: 20171023
  4. FOLINIC ACID [Concomitant]
     Active Substance: LEUCOVORIN
     Indication: RECTAL CANCER
     Dosage: UNK, UNKNOWN
     Route: 065
     Dates: start: 20170206, end: 2017
  5. FLUOROURACIL. [Concomitant]
     Active Substance: FLUOROURACIL
     Indication: RECTAL CANCER
     Dosage: UNK, UNKNOWN
     Route: 065
     Dates: start: 20170206, end: 2017
  6. IRINOTECAN [Concomitant]
     Active Substance: IRINOTECAN
     Indication: RECTAL CANCER
     Dosage: UNK, UNKNOWN
     Route: 065
     Dates: start: 20170206, end: 2017

REACTIONS (3)
  - Skin toxicity [Recovering/Resolving]
  - Herpes zoster [Recovered/Resolved]
  - Folliculitis [Recovering/Resolving]

NARRATIVE: CASE EVENT DATE: 20180411
